FAERS Safety Report 17656307 (Version 1)
Quarter: 2020Q2

REPORT INFORMATION
  Report Type: Spontaneous
  Country: US (occurrence: US)
  Receive Date: 20200410
  Receipt Date: 20200410
  Transmission Date: 20200713
  Serious: Yes (Hospitalization)
  Sender: FDA-Public Use
  Company Number: None

PATIENT
  Age: 52 Year
  Sex: Male

DRUGS (12)
  1. ALLOPURINOL TAB 100 MG [Concomitant]
  2. COLCHICINE TAB 0.6 MG [Concomitant]
  3. DICLOFENAC TAB 75 MG DR [Concomitant]
  4. VALSART/HCTZ TAB 320-125 [Concomitant]
  5. METHYLPRED TAB 4 MG [Concomitant]
  6. OXYCOD/APAP TAB 5-325 MG [Concomitant]
  7. BUMETANIDE TAB 1 MG [Concomitant]
  8. AMLODIPINE TAB 10 MG [Concomitant]
  9. PREDNISONE TAB 10 MG [Concomitant]
  10. HUMIRA [Suspect]
     Active Substance: ADALIMUMAB
     Indication: PRODUCT USED FOR UNKNOWN INDICATION
     Dosage: ?          OTHER FREQUENCY:EVERY 2 WEEKS;?
     Route: 058
     Dates: start: 20190513
  11. PANTOPRAZOLE TAB 40 MG [Concomitant]
  12. METOPROLOL TAR TAB 50 MG [Concomitant]

REACTIONS (1)
  - Gout [None]

NARRATIVE: CASE EVENT DATE: 20200306
